FAERS Safety Report 14065419 (Version 3)
Quarter: 2018Q2

REPORT INFORMATION
  Report Type: Spontaneous
  Country: FR (occurrence: FR)
  Receive Date: 20171009
  Receipt Date: 20180410
  Transmission Date: 20180711
  Serious: Yes (Hospitalization)
  Sender: FDA-Public Use
  Company Number: FR-UCBSA-2017039473

PATIENT
  Age: 13 Year
  Sex: Male

DRUGS (4)
  1. VIMPAT [Suspect]
     Active Substance: LACOSAMIDE
     Indication: EPILEPSY
     Dosage: 50 MG, 2X/DAY (BID)
     Route: 048
  2. RIVOTRIL [Concomitant]
     Active Substance: CLONAZEPAM
     Indication: PRODUCT USED FOR UNKNOWN INDICATION
  3. LAMICTAL [Concomitant]
     Active Substance: LAMOTRIGINE
     Indication: PRODUCT USED FOR UNKNOWN INDICATION
  4. VIMPAT [Suspect]
     Active Substance: LACOSAMIDE
     Dosage: 500 MG, TOTAL
     Route: 048
     Dates: start: 20170915, end: 20170915

REACTIONS (7)
  - Staring [Recovered/Resolved]
  - Accidental overdose [Unknown]
  - Bradyphrenia [Recovered/Resolved]
  - Somnolence [Recovered/Resolved]
  - Ataxia [Recovered/Resolved]
  - Salivary hypersecretion [Recovered/Resolved]
  - Drug administration error [Unknown]

NARRATIVE: CASE EVENT DATE: 20170915
